FAERS Safety Report 7490504-X (Version None)
Quarter: 2011Q2

REPORT INFORMATION
  Report Type: 
  Country: None (occurrence: None)
  Receive Date: 20110517
  Receipt Date: 20110517
  Transmission Date: 20111010
  Serious: Yes (Life-Threatening)
  Sender: FDA-Public Use
  Company Number: None

PATIENT
  Age: 47 Year
  Sex: Male
  Weight: 99.7913 kg

DRUGS (1)
  1. PATANASE [Suspect]
     Indication: DYSPNOEA
     Dosage: 10MG TWICE A DAY
     Dates: start: 20110511, end: 20110514

REACTIONS (1)
  - ANGINA PECTORIS [None]
